FAERS Safety Report 8810819 (Version 2)
Quarter: 2012Q4

REPORT INFORMATION
  Report Type: 
  Country: ZA (occurrence: ZA)
  Receive Date: 20120927
  Receipt Date: 20121119
  Transmission Date: 20130627
  Serious: Yes (Hospitalization)
  Sender: FDA-Public Use
  Company Number: ZA-ELI_LILLY_AND_COMPANY-ZA201209006136

PATIENT
  Sex: Female

DRUGS (3)
  1. HUMALOG 25% LISPRO, 75% NPL [Suspect]
     Indication: TYPE 1 DIABETES MELLITUS
     Dosage: 30 u, each morning
     Route: 058
  2. HUMALOG 25% LISPRO, 75% NPL [Suspect]
     Dosage: 30 u, each evening
     Route: 058
  3. HUMALOG 25% LISPRO, 75% NPL [Suspect]
     Dosage: 40 u, each evening
     Route: 058

REACTIONS (1)
  - Hyperglycaemia [Recovered/Resolved]
